FAERS Safety Report 14788520 (Version 1)
Quarter: 2018Q2

REPORT INFORMATION
  Report Type: Other
  Country: NL (occurrence: NL)
  Receive Date: 20180423
  Receipt Date: 20180423
  Transmission Date: 20180711
  Serious: Yes (Other)
  Sender: FDA-Public Use
  Company Number: NL-ACTELION-A-CH2018-170613

PATIENT
  Age: 46 Year
  Sex: Female

DRUGS (1)
  1. BOSENTAN. [Suspect]
     Active Substance: BOSENTAN
     Indication: SYSTEMIC SCLERODERMA
     Route: 048

REACTIONS (9)
  - Axonal neuropathy [Unknown]
  - Vasculitis [Unknown]
  - Leukopenia [Unknown]
  - Anaemia macrocytic [Unknown]
  - Granulocytopenia [Unknown]
  - Blood copper decreased [Recovered/Resolved]
  - Myelodysplastic syndrome [Unknown]
  - Gait disturbance [Recovering/Resolving]
  - Iron deficiency anaemia [Unknown]

NARRATIVE: CASE EVENT DATE: 2014
